FAERS Safety Report 7777036-6 (Version None)
Quarter: 2011Q3

REPORT INFORMATION
  Report Type: 
  Country: None (occurrence: None)
  Receive Date: 20110926
  Receipt Date: 20110926
  Transmission Date: 20111222
  Serious: Yes (Life-Threatening)
  Sender: FDA-Public Use
  Company Number: None

PATIENT
  Age: 55 Year
  Sex: Male
  Weight: 74.842 kg

DRUGS (1)
  1. AZITHROMYCIN [Suspect]
     Indication: PNEUMONIA
     Dosage: 500 MG
     Route: 048
     Dates: start: 20110916, end: 20110918

REACTIONS (3)
  - INTESTINAL OBSTRUCTION [None]
  - MEGACOLON [None]
  - PAIN [None]
